FAERS Safety Report 4439715-8 (Version None)
Quarter: 2004Q3

REPORT INFORMATION
  Report Type: 
  Country: None (occurrence: None)
  Receive Date: 20040831
  Receipt Date: 20040830
  Transmission Date: 20050211
  Serious: Yes (Death)
  Sender: FDA-Public Use
  Company Number: HQWYE334717AUG04

PATIENT
  Age: 53 Year
  Sex: Male

DRUGS (6)
  1. CORDARONE [Suspect]
     Dosage: 150 MG SOLUTION, INTRAVENOUS
     Route: 042
     Dates: start: 20040607
  2. HEPARIN SODIUM [Suspect]
     Dosage: ^1 KIU QID^; INTRAVENOUS
     Route: 042
     Dates: start: 20040608, end: 20040614
  3. LOVENOX [Suspect]
     Dosage: 40 MG 1X PER 1 DAY; INTRAVENOUS
     Route: 042
     Dates: start: 20040616
  4. TAZOCILLINE (PIPERACILLIN/TAZOBACTAM, INJECTION) [Suspect]
     Dosage: 4 G 2X PER 1 DAY; INTRAVENOUS
     Route: 042
     Dates: start: 20040607, end: 20040609
  5. TIBERAL (ORNIDAZOLE, ) [Suspect]
     Dosage: 2 G 1X PER 1 DAY, INTRAVENOUS
     Route: 042
     Dates: start: 20040607, end: 20040624
  6. XIGRIS [Suspect]
     Dates: start: 20040608, end: 20040612

REACTIONS (3)
  - CEREBRAL HAEMATOMA [None]
  - HAEMORRHAGE INTRACRANIAL [None]
  - SUBARACHNOID HAEMORRHAGE [None]
